FAERS Safety Report 25064915 (Version 1)
Quarter: 2025Q1

REPORT INFORMATION
  Report Type: Spontaneous
  Country: FR (occurrence: FR)
  Receive Date: 20250311
  Receipt Date: 20250311
  Transmission Date: 20250408
  Serious: Yes (Death, Other)
  Sender: ALEXION PHARMACEUTICALS
  Company Number: FR-ASTRAZENECA-202503GLO006889FR

PATIENT
  Age: 34 Year

DRUGS (8)
  1. QUETIAPINE FUMARATE [Suspect]
     Active Substance: QUETIAPINE FUMARATE
     Route: 065
  2. BROMAZEPAM [Suspect]
     Active Substance: BROMAZEPAM
     Dosage: 6 MILLIGRAM, QW
     Route: 065
  3. FENTANYL [Concomitant]
     Active Substance: FENTANYL
     Route: 065
  4. COCAINE [Suspect]
     Active Substance: COCAINE
     Route: 065
  5. VALIUM [Suspect]
     Active Substance: DIAZEPAM
     Route: 065
  6. CODEINE [Suspect]
     Active Substance: CODEINE
     Route: 065
  7. ACETAMINOPHEN [Suspect]
     Active Substance: ACETAMINOPHEN
     Route: 065
  8. TRAMADOL [Suspect]
     Active Substance: TRAMADOL
     Route: 065

REACTIONS (11)
  - Toxicity to various agents [Fatal]
  - Hepatic cytolysis [Unknown]
  - Nephropathy toxic [Unknown]
  - Liver injury [Unknown]
  - Coma [Unknown]
  - Pulmonary oedema [Unknown]
  - Myocarditis [Unknown]
  - Bladder injury [Unknown]
  - Coronary artery disease [Unknown]
  - Pancreatic injury [Unknown]
  - Prescribed overdose [Unknown]
